FAERS Safety Report 4777366-6 (Version None)
Quarter: 2005Q3

REPORT INFORMATION
  Report Type: 
  Country: None (occurrence: None)
  Receive Date: 20050915
  Receipt Date: 20050829
  Transmission Date: 20060218
  Serious: Yes (Hospitalization)
  Sender: FDA-Public Use
  Company Number: USA0508106907

PATIENT
  Age: 48 Year
  Sex: Male

DRUGS (2)
  1. CYMBALTA [Suspect]
     Indication: PAIN
     Dosage: 30 MG DAY
  2. TESTOSTERONE [Concomitant]

REACTIONS (3)
  - DEMENTIA [None]
  - MANIA [None]
  - SEXUAL ACTIVITY INCREASED [None]
